FAERS Safety Report 4480493-4 (Version None)
Quarter: 2004Q4

REPORT INFORMATION
  Report Type: 
  Country: None (occurrence: None)
  Receive Date: 20041018
  Receipt Date: 20041005
  Transmission Date: 20050328
  Serious: Yes (Death)
  Sender: FDA-Public Use
  Company Number: MK200410-0108-1

PATIENT
  Age: 56 Year
  Sex: Female

DRUGS (3)
  1. ANAFRANIL [Suspect]
  2. MEPROBAMATE [Concomitant]
  3. HYDROCODONE [Concomitant]

REACTIONS (2)
  - OPIATES POSITIVE [None]
  - OVERDOSE [None]
